FAERS Safety Report 9876680 (Version 2)
Quarter: 2014Q1

REPORT INFORMATION
  Report Type: Other
  Country: US (occurrence: US)
  Receive Date: 20140206
  Receipt Date: 20140206
  Transmission Date: 20141002
  Serious: No
  Sender: FDA-Public Use
  Company Number: US-ACORDA-ACO_37640_2013

PATIENT
  Sex: Male

DRUGS (12)
  1. AMPYRA [Suspect]
     Indication: PRODUCT USED FOR UNKNOWN INDICATION
     Dosage: 10 MG, Q 12 HRS
     Route: 048
     Dates: start: 20100802
  2. AUBAGIO [Concomitant]
     Indication: PRODUCT USED FOR UNKNOWN INDICATION
  3. VITAMIN D [Concomitant]
     Indication: PRODUCT USED FOR UNKNOWN INDICATION
  4. ADVIL [Concomitant]
     Indication: PRODUCT USED FOR UNKNOWN INDICATION
  5. CIALIS [Concomitant]
     Indication: PRODUCT USED FOR UNKNOWN INDICATION
  6. AMANTADINE [Concomitant]
     Indication: PRODUCT USED FOR UNKNOWN INDICATION
  7. UROXATRAL [Concomitant]
     Indication: PRODUCT USED FOR UNKNOWN INDICATION
  8. ALLOPURINOL [Concomitant]
     Indication: PRODUCT USED FOR UNKNOWN INDICATION
  9. SIMVASTATIN [Concomitant]
     Indication: PRODUCT USED FOR UNKNOWN INDICATION
  10. WELCHOL [Concomitant]
     Indication: PRODUCT USED FOR UNKNOWN INDICATION
  11. FISH OIL [Concomitant]
     Indication: PRODUCT USED FOR UNKNOWN INDICATION
  12. AVONEX [Concomitant]
     Indication: PRODUCT USED FOR UNKNOWN INDICATION

REACTIONS (5)
  - Local swelling [Unknown]
  - Abdominal discomfort [Unknown]
  - Rash [Unknown]
  - Skin exfoliation [Unknown]
  - Nausea [Unknown]
